FAERS Safety Report 11675942 (Version 1)
Quarter: 2015Q4

REPORT INFORMATION
  Report Type: Spontaneous
  Country: US (occurrence: US)
  Receive Date: 20151027
  Receipt Date: 20151027
  Transmission Date: 20160304
  Serious: No
  Sender: FDA-Public Use
  Company Number: US-ELI_LILLY_AND_COMPANY-US201003001583

PATIENT
  Age: 65 Year
  Sex: Female

DRUGS (2)
  1. FORTEO [Suspect]
     Active Substance: TERIPARATIDE
     Indication: OSTEOPOROSIS
     Dosage: 20 UG, DAILY (1/D)
     Dates: start: 200907
  2. FORTEO [Suspect]
     Active Substance: TERIPARATIDE
     Dosage: 20 UG, DAILY (1/D)
     Dates: end: 20100802

REACTIONS (18)
  - Intervertebral disc degeneration [Unknown]
  - Hypokinesia [Unknown]
  - Musculoskeletal discomfort [Not Recovered/Not Resolved]
  - Spinal column stenosis [Unknown]
  - Insomnia [Unknown]
  - Muscle spasms [Unknown]
  - Muscle tightness [Unknown]
  - Back pain [Not Recovered/Not Resolved]
  - Expired product administered [Unknown]
  - Intervertebral disc protrusion [Unknown]
  - Agitation [Unknown]
  - Nerve root injury [Unknown]
  - Fall [Recovered/Resolved]
  - Anxiety [Unknown]
  - Pain in extremity [Unknown]
  - Intervertebral disc space narrowing [Unknown]
  - Spondylolisthesis [Unknown]
  - Vomiting [Unknown]

NARRATIVE: CASE EVENT DATE: 2010
